FAERS Safety Report 4566464-8 (Version None)
Quarter: 2005Q1

REPORT INFORMATION
  Report Type: 
  Country: None (occurrence: None)
  Receive Date: 20050128
  Receipt Date: 20050121
  Transmission Date: 20050727
  Serious: Yes (Hospitalization, Disabling)
  Sender: FDA-Public Use
  Company Number: OMPQ-PR-0501S-0152

PATIENT
  Age: 42 Year
  Sex: Male

DRUGS (8)
  1. OMNIPAQUE 140 [Suspect]
     Indication: NEPHROLITHIASIS
     Dosage: SINGLE DOSE, INTRAVESICAL
     Route: 043
     Dates: start: 20050120, end: 20050120
  2. NITROUS OXIDE [Concomitant]
  3. SEVOFLURANE [Concomitant]
  4. CIPROFLOXACIN HYDROCHLORIDE (CIPRO) [Concomitant]
  5. MIDAZOLAM HYDROCHLORIDE [Concomitant]
  6. MORPHINE [Concomitant]
  7. BACTRIM [Concomitant]
  8. PHENAZOPYRIDINE HYDROCHLORIDE (PYRIDIUM) [Concomitant]

REACTIONS (4)
  - BLINDNESS TRANSIENT [None]
  - HEADACHE [None]
  - POST PROCEDURAL COMPLICATION [None]
  - VASOSPASM [None]
